FAERS Safety Report 5100527-3 (Version None)
Quarter: 2006Q3

REPORT INFORMATION
  Report Type: 
  Country: None (occurrence: None)
  Receive Date: 20060909
  Receipt Date: 20060829
  Transmission Date: 20061208
  Serious: Yes (Other)
  Sender: FDA-Public Use
  Company Number: IT-ABBOTT-06P-083-0342794-00

PATIENT
  Sex: Female
  Weight: 53 kg

DRUGS (3)
  1. KALETRA [Suspect]
     Indication: HIV INFECTION
     Route: 048
     Dates: start: 20031121, end: 20051219
  2. TDF [Concomitant]
     Indication: HIV INFECTION
     Route: 048
  3. LAMIVUDINE [Concomitant]
     Indication: HIV INFECTION
     Route: 048

REACTIONS (1)
  - ABORTION INDUCED [None]
